FAERS Safety Report 9301410 (Version 1)
Quarter: 2013Q2

REPORT INFORMATION
  Report Type: Report from Study
  Country: BR (occurrence: BR)
  Receive Date: 20130521
  Receipt Date: 20130521
  Transmission Date: 20140414
  Serious: Yes (Hospitalization)
  Sender: FDA-Public Use
  Company Number: BR-ABBOTT-13P-020-1064081-00

PATIENT
  Age: 59 Year
  Sex: Male
  Weight: 91 kg

DRUGS (5)
  1. HUMIRA [Suspect]
     Indication: RHEUMATOID ARTHRITIS
     Dosage: ONCE
     Route: 058
     Dates: start: 20130220, end: 20130307
  2. AMYTRIL [Concomitant]
     Indication: DEPRESSION
     Route: 048
     Dates: start: 2011
  3. DONAREN [Concomitant]
     Indication: DEPRESSION
     Route: 048
     Dates: start: 2011
  4. RIVOTRIL [Concomitant]
     Indication: DEPRESSION
     Route: 048
     Dates: start: 2011
  5. PREDNISONE [Concomitant]
     Indication: PAIN IN EXTREMITY
     Dates: start: 2010

REACTIONS (12)
  - Pharyngeal disorder [Unknown]
  - Pain in extremity [Not Recovered/Not Resolved]
  - Local swelling [Recovered/Resolved]
  - Influenza [Recovered/Resolved]
  - Pharyngitis [Recovered/Resolved]
  - Pyrexia [Recovered/Resolved]
  - Erythema [Recovered/Resolved]
  - Rash macular [Recovered/Resolved]
  - Hypoaesthesia [Unknown]
  - Mobility decreased [Unknown]
  - Neuropathy peripheral [Unknown]
  - Adverse event [Unknown]
